FAERS Safety Report 18560809 (Version 1)
Quarter: 2020Q4

REPORT INFORMATION
  Report Type: Report from Study
  Country: BR (occurrence: BR)
  Receive Date: 20201130
  Receipt Date: 20201130
  Transmission Date: 20210114
  Serious: Yes (Life-Threatening, Other)
  Sender: FDA-Public Use
  Company Number: NVSC2020BR318703

PATIENT
  Sex: Male

DRUGS (2)
  1. IMATINIB. [Suspect]
     Active Substance: IMATINIB MESYLATE
     Indication: TUBERCULOSIS
     Dosage: UNK
     Route: 065
     Dates: start: 202006
  2. IMATINIB. [Suspect]
     Active Substance: IMATINIB MESYLATE
     Indication: CHRONIC MYELOID LEUKAEMIA
     Dosage: 600 MG
     Route: 065

REACTIONS (12)
  - Nodule [Unknown]
  - Lenticular opacities [Unknown]
  - Drug interaction [Unknown]
  - Drug ineffective [Unknown]
  - Aortic arteriosclerosis [Unknown]
  - Pleural effusion [Unknown]
  - Lymphadenopathy [Unknown]
  - Feeling abnormal [Unknown]
  - Weight decreased [Unknown]
  - Product use in unapproved indication [Unknown]
  - Treatment failure [Unknown]
  - Speech disorder [Unknown]
